FAERS Safety Report 8073089-9 (Version None)
Quarter: 2012Q1

REPORT INFORMATION
  Report Type: 
  Country: None (occurrence: None)
  Receive Date: 20120123
  Receipt Date: 20120123
  Transmission Date: 20120608
  Serious: Yes (Hospitalization)
  Sender: FDA-Public Use
  Company Number: None

PATIENT
  Age: 67 Year
  Sex: Male
  Weight: 65.7716 kg

DRUGS (8)
  1. PREDNISONE TAB [Concomitant]
  2. CRESTOR [Concomitant]
  3. PROGRAF [Concomitant]
  4. LANTUS [Concomitant]
  5. METOPROLOL SUCCINATE [Concomitant]
  6. ADVAIR DISKUS 100/50 [Concomitant]
  7. ERLOTINIB HYDROCHLORIDE [Suspect]
     Indication: NON-SMALL CELL LUNG CANCER
     Dosage: 150MG DAILY ORAL
     Route: 048
     Dates: start: 20111123, end: 20111215
  8. NEXIUM [Concomitant]

REACTIONS (2)
  - DEHYDRATION [None]
  - RENAL FAILURE ACUTE [None]
